FAERS Safety Report 11227735 (Version 2)
Quarter: 2015Q2

REPORT INFORMATION
  Report Type: Report from Study
  Country: IL (occurrence: IL)
  Receive Date: 20150630
  Receipt Date: 20150630
  Transmission Date: 20150821
  Serious: Yes (Other)
  Sender: FDA-Public Use
  Company Number: IL-ABBVIE-15P-082-1415761-00

PATIENT
  Age: 53 Year
  Sex: Male

DRUGS (4)
  1. VIEKIRAX [Suspect]
     Active Substance: OMBITASVIR\PARITAPREVIR\RITONAVIR
     Indication: HEPATITIS C
     Dosage: 2 TABS PER DAY
     Route: 048
     Dates: start: 20150621
  2. EXVIERA [Suspect]
     Active Substance: DASABUVIR
     Dosage: 3 TAB PER DAY
     Route: 048
     Dates: start: 20150623, end: 20150623
  3. RIBAVIRIN. [Suspect]
     Active Substance: RIBAVIRIN
     Indication: HEPATITIS C
     Dosage: 200MG 3 TIMES PER DAY
     Route: 048
     Dates: start: 20150621
  4. EXVIERA [Suspect]
     Active Substance: DASABUVIR
     Indication: HEPATITIS C
     Dosage: 2 TABS PER DAY
     Route: 048
     Dates: start: 20150621, end: 20150623

REACTIONS (2)
  - Hepatic pain [Recovered/Resolved]
  - Drug administration error [Unknown]

NARRATIVE: CASE EVENT DATE: 20150622
